FAERS Safety Report 4416244-9 (Version None)
Quarter: 2004Q3

REPORT INFORMATION
  Report Type: 
  Country: None (occurrence: None)
  Receive Date: 20040805
  Receipt Date: 20040802
  Transmission Date: 20050211
  Serious: Yes (Life-Threatening)
  Sender: FDA-Public Use
  Company Number: 200412903FR

PATIENT
  Age: 58 Year
  Sex: Female
  Weight: 148 kg

DRUGS (6)
  1. LASIX [Suspect]
     Route: 048
  2. TRACLEER [Suspect]
     Indication: PULMONARY HYPERTENSION
     Route: 048
     Dates: start: 20030329, end: 20040109
  3. STILNOX [Suspect]
     Route: 048
  4. PREVISCAN 20 MG [Concomitant]
     Route: 048
  5. ALDACTONE [Suspect]
     Route: 048
  6. DILTIAZEM HCL [Suspect]
     Route: 048

REACTIONS (11)
  - CARDIAC FAILURE [None]
  - DRY MOUTH [None]
  - DYSPNOEA [None]
  - HYPOXIA [None]
  - NIGHTMARE [None]
  - OEDEMA PERIPHERAL [None]
  - PULMONARY OEDEMA [None]
  - TOOTH EXTRACTION [None]
  - TREATMENT NONCOMPLIANCE [None]
  - WEIGHT DECREASED [None]
  - WEIGHT INCREASED [None]
